FAERS Safety Report 9831946 (Version 3)
Quarter: 2014Q1

REPORT INFORMATION
  Report Type: Report from Study
  Country: US (occurrence: US)
  Receive Date: 20140121
  Receipt Date: 20140303
  Transmission Date: 20141002
  Serious: Yes (Other)
  Sender: FDA-Public Use
  Company Number: US-ASTELLAS-2014US000342

PATIENT
  Age: 82 Year
  Sex: Male
  Weight: 65 kg

DRUGS (4)
  1. ERLOTINIB TABLET [Suspect]
     Indication: NON-SMALL CELL LUNG CANCER STAGE IV
     Dosage: 150 MG, UID/QD
     Route: 048
     Dates: start: 20130903, end: 20130916
  2. ERLOTINIB TABLET [Suspect]
     Dosage: 150 MG, UID/QD
     Route: 048
     Dates: start: 20130923
  3. CABOZANTINIB [Suspect]
     Indication: NON-SMALL CELL LUNG CANCER STAGE IV
     Dosage: 40 MG, UID/QD
     Route: 048
     Dates: start: 20130903, end: 20130916
  4. CABOZANTINIB [Suspect]
     Dosage: 20 MG, UID/QD
     Route: 048
     Dates: start: 20130923

REACTIONS (5)
  - Amylase increased [Recovered/Resolved]
  - Hyponatraemia [Recovered/Resolved]
  - Lipase increased [Recovered/Resolved]
  - Lymphocyte count decreased [Recovered/Resolved]
  - Rhinorrhoea [Recovered/Resolved]
